FAERS Safety Report 6396112-6 (Version None)
Quarter: 2009Q4

REPORT INFORMATION
  Report Type: 
  Country: None (occurrence: None)
  Receive Date: 20091009
  Receipt Date: 20090330
  Transmission Date: 20100525
  Serious: Yes (Disabling, Other)
  Sender: FDA-Public Use
  Company Number: CA-BAUSCH-2009BL001407

PATIENT
  Age: 45 Year
  Sex: Male

DRUGS (1)
  1. REXOPHTAL N UD [Suspect]
     Indication: DRUG USE FOR UNKNOWN INDICATION
     Route: 047

REACTIONS (3)
  - CONJUNCTIVITIS ALLERGIC [None]
  - DACRYOSTENOSIS ACQUIRED [None]
  - INTENTIONAL DRUG MISUSE [None]
